FAERS Safety Report 26130093 (Version 1)
Quarter: 2025Q4

REPORT INFORMATION
  Report Type: Spontaneous
  Country: CA (occurrence: CA)
  Receive Date: 20251208
  Receipt Date: 20251208
  Transmission Date: 20260118
  Serious: Yes (Life-Threatening)
  Sender: JOHNSON AND JOHNSON
  Company Number: CA-JNJFOC-20251205635

PATIENT
  Age: 44 Year
  Sex: Female

DRUGS (1)
  1. CONCERTA [Suspect]
     Active Substance: METHYLPHENIDATE HYDROCHLORIDE
     Indication: Insomnia
     Route: 048

REACTIONS (3)
  - Anxiety [Recovered/Resolved]
  - Depressed mood [Recovered/Resolved]
  - Negative thoughts [Recovered/Resolved]
